FAERS Safety Report 4463765-9 (Version None)
Quarter: 2004Q3

REPORT INFORMATION
  Report Type: 
  Country: None (occurrence: None)
  Receive Date: 20040917
  Receipt Date: 20040727
  Transmission Date: 20050211
  Serious: No
  Sender: FDA-Public Use
  Company Number: US-JNJFOC-20040707630

PATIENT
  Sex: Female

DRUGS (5)
  1. ORTHO EVRA [Suspect]
     Indication: CONTRACEPTION
     Dosage: 1 DOSE(S), 3 IN 4 WEEK, TRANSDERMAL
     Route: 062
     Dates: start: 20040101
  2. ECHINACEA (ECHINACEA EXTRACT) [Concomitant]
  3. CRANBERRY (GENERAL NUTRIENTS) TABLETS [Concomitant]
  4. VALTREX [Concomitant]
  5. TENUATE [Concomitant]

REACTIONS (1)
  - NASOPHARYNGITIS [None]
